FAERS Safety Report 5839486-4 (Version None)
Quarter: 2008Q3

REPORT INFORMATION
  Report Type: 
  Country: None (occurrence: None)
  Receive Date: 20080807
  Receipt Date: 20080722
  Transmission Date: 20090109
  Serious: Yes (Life-Threatening, Hospitalization)
  Sender: FDA-Public Use
  Company Number: 2008EU001477

PATIENT
  Sex: Male

DRUGS (3)
  1. PROGRAF [Suspect]
     Indication: RENAL TRANSPLANT
     Dosage: 3 MG, BID,
  2. MYFORTIC [Concomitant]
  3. CORTICOSTEROIDS [Concomitant]

REACTIONS (3)
  - DRUG INTOLERANCE [None]
  - KAPOSI'S SARCOMA [None]
  - NASAL CONGESTION [None]
